FAERS Safety Report 6153138-5 (Version None)
Quarter: 2009Q2

REPORT INFORMATION
  Report Type: 
  Country: None (occurrence: None)
  Receive Date: 20090413
  Receipt Date: 20090406
  Transmission Date: 20091009
  Serious: Yes (Hospitalization)
  Sender: FDA-Public Use
  Company Number: MY-RB-013675-09

PATIENT
  Age: 36 Year
  Sex: Male

DRUGS (3)
  1. SUBUTEX [Suspect]
     Indication: DRUG USE FOR UNKNOWN INDICATION
     Dosage: UNKNOWN DOSAGE
     Route: 042
  2. DORMICUM [Suspect]
     Indication: DRUG USE FOR UNKNOWN INDICATION
     Dosage: UNKNOWN DOSAGE AND FORM
     Route: 042
  3. VALIUM [Suspect]
     Indication: DRUG USE FOR UNKNOWN INDICATION
     Dosage: DOSAGE AND FORM UNKNOWN
     Route: 042

REACTIONS (11)
  - CARDIAC VALVE VEGETATION [None]
  - CHILLS [None]
  - EJECTION FRACTION DECREASED [None]
  - ENDOCARDITIS [None]
  - HEPATITIS C ANTIBODY POSITIVE [None]
  - INTENTIONAL DRUG MISUSE [None]
  - PSEUDOMONAS PSEUDOMALLEI INFECTION [None]
  - PULMONARY EMBOLISM [None]
  - PYREXIA [None]
  - STAPHYLOCOCCAL INFECTION [None]
  - WEIGHT DECREASED [None]
